FAERS Safety Report 9105615 (Version 2)
Quarter: 2013Q2

REPORT INFORMATION
  Report Type: Spontaneous
  Country: DE (occurrence: DE)
  Receive Date: 20130220
  Receipt Date: 20130508
  Transmission Date: 20140414
  Serious: Yes (Hospitalization)
  Sender: FDA-Public Use
  Company Number: GB-UCBSA-078626

PATIENT
  Age: 16 Year
  Sex: Female
  Weight: 64.4 kg

DRUGS (2)
  1. EQUASYM RETARD [Suspect]
     Indication: ATTENTION DEFICIT/HYPERACTIVITY DISORDER
     Route: 048
     Dates: start: 201005
  2. METHYLPHENIDATE [Concomitant]
     Dosage: UNKNOWN DOSE
     Dates: start: 2004

REACTIONS (12)
  - Concussion [Unknown]
  - Headache [Unknown]
  - Vomiting [Unknown]
  - Visual impairment [Recovered/Resolved]
  - Paraesthesia [Unknown]
  - Pain in extremity [Unknown]
  - Muscular weakness [Unknown]
  - Spinal pain [Unknown]
  - Post procedural complication [Unknown]
  - Somatoform disorder [Unknown]
  - Decreased appetite [Unknown]
  - Menstruation irregular [Unknown]
